FAERS Safety Report 11776476 (Version 7)
Quarter: 2016Q1

REPORT INFORMATION
  Report Type: Report from Study
  Country: KR (occurrence: KR)
  Receive Date: 20151125
  Receipt Date: 20160115
  Transmission Date: 20160525
  Serious: Yes (Hospitalization, Other)
  Sender: FDA-Public Use
  Company Number: KP-ALEXION PHARMACEUTICALS INC-A201504616

PATIENT
  Age: 29 Year
  Sex: Male

DRUGS (4)
  1. SOLONDO [Suspect]
     Active Substance: PREDNISOLONE
     Indication: BLOOD LACTATE DEHYDROGENASE INCREASED
     Dosage: 5 MG, EVERY SECOND DAY
     Route: 065
     Dates: end: 20151007
  2. SOLONDO [Suspect]
     Active Substance: PREDNISOLONE
     Dosage: 10 MG, UNK
     Route: 065
     Dates: start: 20151217
  3. SOLIRIS [Suspect]
     Active Substance: ECULIZUMAB
     Dosage: 900 MG, Q2W
     Route: 042
     Dates: start: 20151106
  4. SOLIRIS [Suspect]
     Active Substance: ECULIZUMAB
     Indication: PAROXYSMAL NOCTURNAL HAEMOGLOBINURIA
     Dosage: 600 MG, QW
     Route: 042
     Dates: start: 20151005, end: 20151028

REACTIONS (12)
  - Haemolysis [Recovering/Resolving]
  - Product preparation error [Recovered/Resolved]
  - Haemoglobin decreased [Recovered/Resolved]
  - Pyrexia [Recovering/Resolving]
  - Anaemia [Unknown]
  - Haemoglobin decreased [Not Recovered/Not Resolved]
  - Drug ineffective [Unknown]
  - Dizziness [Recovered/Resolved]
  - Blood lactate dehydrogenase increased [Recovering/Resolving]
  - Blood bilirubin increased [Unknown]
  - Dizziness [Recovering/Resolving]
  - Haemoglobin decreased [Recovering/Resolving]

NARRATIVE: CASE EVENT DATE: 20151007
